FAERS Safety Report 20086770 (Version 1)
Quarter: 2021Q4

REPORT INFORMATION
  Report Type: Spontaneous
  Country: CN (occurrence: None)
  Receive Date: 20211118
  Receipt Date: 20211118
  Transmission Date: 20220303
  Serious: Yes (Other)
  Sender: FDA-Public Use
  Company Number: CN-ROCHE-2954090

PATIENT
  Age: 64 Year
  Sex: Male

DRUGS (3)
  1. ATEZOLIZUMAB [Suspect]
     Active Substance: ATEZOLIZUMAB
     Indication: Small cell lung cancer extensive stage
     Dosage: TOTAL 6 CYCLES
     Route: 065
     Dates: start: 20210709
  2. ETOPOSIDE [Concomitant]
     Active Substance: ETOPOSIDE
     Indication: Small cell lung cancer extensive stage
     Dates: start: 20210709
  3. CISPLATIN [Concomitant]
     Active Substance: CISPLATIN
     Indication: Small cell lung cancer extensive stage
     Dates: start: 20210709

REACTIONS (2)
  - Anaemia [Recovering/Resolving]
  - Renal impairment [Recovering/Resolving]
